FAERS Safety Report 17205404 (Version 1)
Quarter: 2019Q4

REPORT INFORMATION
  Report Type: Spontaneous
  Country: CA (occurrence: CA)
  Receive Date: 20191227
  Receipt Date: 20191227
  Transmission Date: 20200122
  Serious: Yes (Life-Threatening)
  Sender: FDA-Public Use
  Company Number: CA-ROCHE-2503052

PATIENT
  Age: 41 Year
  Sex: Female

DRUGS (6)
  1. ZOPICLONE [Suspect]
     Active Substance: ZOPICLONE
     Indication: PRODUCT USED FOR UNKNOWN INDICATION
     Route: 065
  2. GLUCOSE [Suspect]
     Active Substance: DEXTROSE
     Indication: PRODUCT USED FOR UNKNOWN INDICATION
     Route: 042
  3. CLONAZEPAM. [Suspect]
     Active Substance: CLONAZEPAM
     Indication: PRODUCT USED FOR UNKNOWN INDICATION
     Route: 065
  4. NOVORAPID [Suspect]
     Active Substance: INSULIN ASPART
     Indication: PRODUCT USED FOR UNKNOWN INDICATION
     Route: 058
  5. GLUCOSE [Suspect]
     Active Substance: DEXTROSE
     Route: 042
  6. GLUCOSE [Suspect]
     Active Substance: DEXTROSE
     Route: 042

REACTIONS (7)
  - Suicide attempt [Unknown]
  - Hypoglycaemia [Unknown]
  - Oedema peripheral [Unknown]
  - Intentional overdose [Unknown]
  - Blood pressure decreased [Unknown]
  - Blood potassium decreased [Unknown]
  - Lethargy [Unknown]
